FAERS Safety Report 8558106-1 (Version None)
Quarter: 2012Q3

REPORT INFORMATION
  Report Type: 
  Country: None (occurrence: None)
  Receive Date: 20120801
  Receipt Date: 20120723
  Transmission Date: 20120928
  Serious: Yes (Other)
  Sender: FDA-Public Use
  Company Number: BR-ASTRAZENECA-2012SE30172

PATIENT
  Age: 75 Year
  Sex: Female

DRUGS (2)
  1. ATACAND HCT [Suspect]
     Dosage: 16/12.5 MG
     Route: 048
     Dates: end: 20120508
  2. ATACAND HCT [Suspect]
     Dosage: 16/5MG
     Route: 048
     Dates: start: 20120509, end: 20120101

REACTIONS (3)
  - BLOOD PRESSURE INCREASED [None]
  - BLOOD PRESSURE DECREASED [None]
  - COUGH [None]
